FAERS Safety Report 11592261 (Version 1)
Quarter: 2015Q4

REPORT INFORMATION
  Report Type: Spontaneous
  Country: US (occurrence: US)
  Receive Date: 20151005
  Receipt Date: 20151005
  Transmission Date: 20160304
  Serious: Yes (Death, Life-Threatening)
  Sender: FDA-Public Use
  Company Number: US-ACCORD-034067

PATIENT
  Age: 32 Year
  Sex: Female

DRUGS (4)
  1. OXYCODONE/OXYCODONE HYDROCHLORIDE/OXYCODONE PECTINATE/OXYCODONE TEREPHTHALATE [Concomitant]
  2. QUETIAPINE [Suspect]
     Active Substance: QUETIAPINE
     Indication: PRODUCT USED FOR UNKNOWN INDICATION
  3. AMFETAMINE [Concomitant]
     Active Substance: AMPHETAMINE
  4. MORPHINE [Concomitant]
     Active Substance: MORPHINE

REACTIONS (6)
  - Acute kidney injury [Fatal]
  - Brain oedema [Fatal]
  - Metabolic acidosis [Fatal]
  - Tachycardia [Unknown]
  - Rhabdomyolysis [Fatal]
  - Toxicity to various agents [Fatal]

NARRATIVE: CASE EVENT DATE: 20140317
